FAERS Safety Report 6766284-X (Version None)
Quarter: 2010Q2

REPORT INFORMATION
  Report Type: 
  Country: None (occurrence: None)
  Receive Date: 20100611
  Receipt Date: 20100531
  Transmission Date: 20101027
  Serious: Yes (Death, Other)
  Sender: FDA-Public Use
  Company Number: JP-PFIZER INC-2010053710

PATIENT
  Age: 78 Year
  Sex: Male
  Weight: 60.2 kg

DRUGS (11)
  1. AZULFIDINE [Suspect]
     Indication: RHEUMATOID ARTHRITIS
     Dosage: 500 MG DAILY
     Route: 048
     Dates: start: 20100304
  2. AZULFIDINE [Suspect]
     Dosage: 500 MG, 2X/DAY
     Dates: start: 20100311, end: 20100419
  3. ALENDRONATE SODIUM [Concomitant]
     Indication: OSTEOPOROSIS
     Dosage: UNK
     Route: 048
     Dates: start: 20100129, end: 20100419
  4. TAKEPRON [Concomitant]
     Indication: GASTRIC ULCER
     Dosage: UNK
     Route: 048
     Dates: end: 20100419
  5. PREDONINE [Concomitant]
     Indication: RHEUMATOID ARTHRITIS
     Dosage: UNK
     Route: 048
     Dates: start: 20100129, end: 20100422
  6. GLUFAST [Concomitant]
     Route: 048
  7. INSULIN DETEMIR [Concomitant]
     Route: 058
  8. ASPIRIN [Concomitant]
     Indication: CEREBRAL INFARCTION
     Dosage: UNK
     Route: 048
     Dates: end: 20100419
  9. CALBLOCK [Concomitant]
     Indication: HYPERTENSION
     Dosage: UNK
     Route: 048
     Dates: end: 20100419
  10. OLMETEC [Concomitant]
     Indication: HYPERTENSION
     Dosage: UNK
     Route: 048
     Dates: end: 20100419
  11. MONTELUKAST SODIUM [Concomitant]
     Indication: ASTHMA
     Dosage: UNK
     Route: 048
     Dates: end: 20100419

REACTIONS (7)
  - CHEST X-RAY ABNORMAL [None]
  - CORYNEBACTERIUM TEST POSITIVE [None]
  - DISSEMINATED INTRAVASCULAR COAGULATION [None]
  - LEUKOPENIA [None]
  - OROPHARYNGEAL PAIN [None]
  - PYREXIA [None]
  - SEPTIC SHOCK [None]
